FAERS Safety Report 8408896-3 (Version None)
Quarter: 2012Q2

REPORT INFORMATION
  Report Type: 
  Country: None (occurrence: None)
  Receive Date: 20120604
  Receipt Date: 20120309
  Transmission Date: 20120825
  Serious: No
  Sender: FDA-Public Use
  Company Number: US-NOVEN-12US004268

PATIENT
  Age: 23 Year
  Sex: Female

DRUGS (2)
  1. ORTHO EVRA [Concomitant]
     Indication: CONTRACEPTION
     Route: 062
  2. DAYTRANA [Suspect]
     Indication: PRODUCT USED FOR UNKNOWN INDICATION
     Dosage: 30 MG, UNK
     Route: 062
     Dates: start: 20120301

REACTIONS (3)
  - APPLICATION SITE URTICARIA [None]
  - URTICARIA [None]
  - OFF LABEL USE [None]
